FAERS Safety Report 5460187-9 (Version None)
Quarter: 2007Q3

REPORT INFORMATION
  Report Type: 
  Country: None (occurrence: None)
  Receive Date: 20070919
  Receipt Date: 20070529
  Transmission Date: 20080115
  Serious: No
  Sender: FDA-Public Use
  Company Number: US-ASTRAZENECA-2007UW13125

PATIENT
  Age: 31 Year
  Sex: Female

DRUGS (2)
  1. SEROQUEL [Suspect]
     Indication: BIPOLAR DISORDER
     Route: 048
     Dates: start: 20070516, end: 20070501
  2. LEXAPRO [Interacting]
     Indication: BIPOLAR DISORDER
     Dates: start: 20060101

REACTIONS (4)
  - DRUG INTERACTION [None]
  - MUSCLE SPASMS [None]
  - NIGHTMARE [None]
  - SOMNAMBULISM [None]
